FAERS Safety Report 9557635 (Version 1)
Quarter: 2013Q3

REPORT INFORMATION
  Report Type: Spontaneous
  Country: FR (occurrence: FR)
  Receive Date: 20130926
  Receipt Date: 20130926
  Transmission Date: 20140515
  Serious: Yes (Hospitalization)
  Sender: FDA-Public Use
  Company Number: FR-GLAXOSMITHKLINE-B0924269A

PATIENT
  Age: 89 Year
  Sex: Female

DRUGS (5)
  1. DEROXAT [Suspect]
     Indication: DEPRESSION
     Dosage: 20MG PER DAY
     Route: 048
     Dates: start: 20121020, end: 20121030
  2. LANSOPRAZOLE [Concomitant]
     Indication: NAUSEA
     Dosage: 15MG PER DAY
     Route: 048
     Dates: start: 20121026, end: 20121031
  3. DOMPERIDONE [Concomitant]
     Dosage: 20MG PER DAY
     Route: 048
     Dates: start: 20121026, end: 20121031
  4. ATACAND [Concomitant]
     Indication: HYPERTENSION
     Dosage: 8MG PER DAY
     Route: 065
  5. IMOVANE [Concomitant]
     Dosage: 7.5MG PER DAY
     Route: 048

REACTIONS (3)
  - Drug withdrawal syndrome [Recovered/Resolved]
  - Hallucination [Recovered/Resolved]
  - Confusional state [Recovered/Resolved]
